FAERS Safety Report 11951147 (Version 1)
Quarter: 2016Q1

REPORT INFORMATION
  Report Type: Spontaneous
  Country: EG (occurrence: None)
  Receive Date: 20160126
  Receipt Date: 20160126
  Transmission Date: 20160526
  Serious: Yes (Death, Hospitalization)
  Sender: FDA-Public Use
  Company Number: None

PATIENT
  Age: 2 Day
  Sex: Male
  Weight: 4 kg

DRUGS (1)
  1. CYTOTEC [Suspect]
     Active Substance: MISOPROSTOL
     Indication: ABORTION
     Dosage: ONCE
     Route: 048

REACTIONS (14)
  - Altered state of consciousness [None]
  - Convulsion neonatal [None]
  - Cyanosis neonatal [None]
  - Encephalitis [None]
  - Dehydration [None]
  - Hyperreflexia [None]
  - Metabolic acidosis [None]
  - Shock [None]
  - Exposure during breast feeding [None]
  - Hypoperfusion [None]
  - Red blood cell count decreased [None]
  - Hypothermia neonatal [None]
  - Blood urea increased [None]
  - Haemoglobin decreased [None]

NARRATIVE: CASE EVENT DATE: 20160123
